FAERS Safety Report 7040184-2 (Version None)
Quarter: 2010Q4

REPORT INFORMATION
  Report Type: 
  Country: None (occurrence: None)
  Receive Date: 20101012
  Receipt Date: 20101004
  Transmission Date: 20110411
  Serious: Yes (Hospitalization)
  Sender: FDA-Public Use
  Company Number: US-PURDUE-USA-2010-0048509

PATIENT
  Sex: Female

DRUGS (3)
  1. OXYCONTIN [Suspect]
     Indication: PAIN
     Dosage: 80 MG, UNK
     Dates: start: 19980101
  2. OXYCONTIN [Suspect]
     Indication: RHEUMATOID ARTHRITIS
  3. OXYCODONE HCL [Concomitant]
     Indication: PRODUCT USED FOR UNKNOWN INDICATION

REACTIONS (7)
  - CONDITION AGGRAVATED [None]
  - CROHN'S DISEASE [None]
  - INFECTION [None]
  - MALAISE [None]
  - PRODUCT SUBSTITUTION ISSUE [None]
  - RASH [None]
  - SURGERY [None]
